FAERS Safety Report 8986046 (Version 1)
Quarter: 2012Q4

REPORT INFORMATION
  Report Type: Spontaneous
  Country: US (occurrence: None)
  Receive Date: 20121214
  Receipt Date: 20121214
  Transmission Date: 20130627
  Serious: Yes (Hospitalization)
  Sender: FDA-Public Use
  Company Number: 2012SP004492

PATIENT
  Sex: Male
  Weight: 2.4 kg

DRUGS (8)
  1. AMIODARONE [Suspect]
     Indication: DRUG USE FOR UNKNOWN INDICATION
     Route: 040
  2. LIDOCAINE [Suspect]
     Indication: DRUG USE FOR UNKNOWN INDICATION
     Route: 042
  3. PHENYTOIN [Suspect]
     Indication: DRUG USE FOR UNKNOWN INDICATION
     Route: 040
  4. ESMOLOL [Concomitant]
  5. MAGNESIUM [Concomitant]
  6. CALCIUM [Concomitant]
  7. POTASSIUM [Concomitant]
  8. MILRINONE [Concomitant]

REACTIONS (11)
  - Neurotoxicity [None]
  - Drug interaction [None]
  - Toxicity to various agents [None]
  - Myocardial infarction [None]
  - Treatment failure [None]
  - Atrioventricular block [None]
  - Pupil fixed [None]
  - Areflexia [None]
  - Disease recurrence [None]
  - Ventricular tachycardia [None]
  - Torsade de pointes [None]
